FAERS Safety Report 8335821 (Version 3)
Quarter: 2013Q1

REPORT INFORMATION
  Report Type: Report from Study
  Country: CH (occurrence: CH)
  Receive Date: 20120113
  Receipt Date: 20130225
  Transmission Date: 20140127
  Serious: Yes (Life-Threatening, Hospitalization)
  Sender: FDA-Public Use
  Company Number: CH-PFIZER INC-2012005548

PATIENT
  Age: 78 Year
  Sex: Female
  Weight: 56 kg

DRUGS (2)
  1. CRIZOTINIB [Suspect]
     Indication: NEUROENDOCRINE CARCINOMA METASTATIC
     Dosage: 250 MG, 2X/DAY
     Dates: start: 20111017, end: 20120107
  2. CRIZOTINIB [Suspect]
     Indication: NON-SMALL CELL LUNG CANCER METASTATIC

REACTIONS (3)
  - Interstitial lung disease [Recovering/Resolving]
  - Visual impairment [Unknown]
  - Fatigue [Unknown]
